FAERS Safety Report 12988803 (Version 1)
Quarter: 2016Q4

REPORT INFORMATION
  Report Type: Spontaneous
  Country: US (occurrence: US)
  Receive Date: 20161130
  Receipt Date: 20161130
  Transmission Date: 20170207
  Serious: No
  Sender: FDA-Public Use
  Company Number: US-ASTRAZENECA-1999AU07909

PATIENT
  Age: 14591 Day
  Sex: Female
  Weight: 52.6 kg

DRUGS (8)
  1. CLARITIN [Concomitant]
     Active Substance: LORATADINE
     Indication: HYPERSENSITIVITY
     Dosage: AS REQUIRED
     Route: 065
  2. PULMICORT TURBUHALER [Suspect]
     Active Substance: BUDESONIDE
     Indication: ASTHMA
     Dosage: DOSE: 200 MCG TOTAL DAILY DOSE: 400 MCG
     Route: 055
     Dates: start: 19980615
  3. AZMACORT [Concomitant]
     Active Substance: TRIAMCINOLONE ACETONIDE
     Indication: ASTHMA
     Route: 055
  4. NASACORT [Concomitant]
     Active Substance: TRIAMCINOLONE ACETONIDE
     Indication: RHINITIS
  5. PULMICORT TURBUHALER [Suspect]
     Active Substance: BUDESONIDE
     Indication: ASTHMA
     Dosage: 180 MCG 1 PUFF IN THE MORNING AND 1 PUFF IN THE AFTERNOON FOR TWO TO THREE YEARS
     Route: 055
  6. THEO-24 [Concomitant]
     Active Substance: THEOPHYLLINE ANHYDROUS
     Indication: ASTHMA
     Dosage: DOSE: 300 MG TOTAL DAILY DOSE: 300 MG
     Route: 065
  7. VENTOLINE ROTADISK [Concomitant]
     Indication: ASTHMA
     Route: 055
  8. PULMICORT TURBUHALER [Suspect]
     Active Substance: BUDESONIDE
     Indication: ASTHMA
     Dosage: 180 MCG 4 PUFFS A DAY WHICH SHE EITHER TAKES 2 PUFFS IN THE AM AND 2 PUFFS IN THE EVENING OR SOME...
     Route: 055

REACTIONS (3)
  - Rash [Not Recovered/Not Resolved]
  - Drug ineffective [Unknown]
  - Off label use [Unknown]

NARRATIVE: CASE EVENT DATE: 19980815
